FAERS Safety Report 10221485 (Version 2)
Quarter: 2014Q2

REPORT INFORMATION
  Report Type: Report from Study
  Country: FR (occurrence: FR)
  Receive Date: 20140606
  Receipt Date: 20140606
  Transmission Date: 20141212
  Serious: Yes (Life-Threatening, Hospitalization)
  Sender: FDA-Public Use
  Company Number: FR-DSJP-DSM-2013-00666

PATIENT
  Sex: 0

DRUGS (2)
  1. OLMETEC 20 MG [Suspect]
     Indication: HYPERTENSION
     Dosage: 20 MG, QD
     Route: 048
     Dates: start: 20070103, end: 20120513
  2. OLMETEC 20 MG [Suspect]
     Dosage: 20 MG, QD
     Route: 048
     Dates: start: 20130101, end: 20130625

REACTIONS (7)
  - Autoimmune disorder [Not Recovered/Not Resolved]
  - Diarrhoea [Recovering/Resolving]
  - Weight decreased [Recovering/Resolving]
  - Malnutrition [Recovering/Resolving]
  - Intestinal villi atrophy [Recovering/Resolving]
  - Anti-transglutaminase antibody [Recovering/Resolving]
  - Malabsorption [Recovering/Resolving]
